FAERS Safety Report 8077163-2 (Version None)
Quarter: 2012Q1

REPORT INFORMATION
  Report Type: 
  Country: None (occurrence: None)
  Receive Date: 20120127
  Receipt Date: 20120123
  Transmission Date: 20120608
  Serious: Yes (Hospitalization, Other)
  Sender: FDA-Public Use
  Company Number: PHHO2011DK02267

PATIENT
  Sex: Male
  Weight: 75.2 kg

DRUGS (19)
  1. POTASSIUM CHLORIDE [Concomitant]
     Indication: MINERAL SUPPLEMENTATION
     Dosage: 750 MG, UNK
     Route: 048
     Dates: start: 20110607, end: 20111210
  2. ISODUR [Concomitant]
     Indication: ANGINA PECTORIS
     Dosage: DOSE INCREASED
     Route: 048
     Dates: start: 20100825, end: 20110123
  3. BLINDED ALISKIREN [Suspect]
     Dosage: CODE NOT BROKEN
     Route: 048
     Dates: start: 20110318, end: 20110410
  4. FUROSEMIDE [Concomitant]
     Dosage: 80 MG, BID
     Route: 048
     Dates: start: 20110607, end: 20111210
  5. ENALAPRIL MALEATE [Concomitant]
  6. BLINDED ALISKIREN [Suspect]
     Indication: CARDIAC FAILURE
     Dosage: CODE NOT BROKEN
     Route: 048
     Dates: start: 20101004, end: 20110308
  7. METOPROLOL SUCCINATE [Concomitant]
     Indication: CARDIAC FAILURE
     Dosage: 200 MG, QD
     Route: 048
     Dates: start: 20101014
  8. METOPROLOL SUCCINATE [Concomitant]
     Dosage: 200 MG, QD
     Route: 048
     Dates: start: 20101014
  9. BLINDED NO TREATMENT RECEIVED [Suspect]
     Indication: CARDIAC FAILURE
     Dosage: CODE NOT BROKEN
     Route: 048
     Dates: start: 20101004, end: 20110308
  10. FUROSEMIDE [Concomitant]
     Indication: CARDIAC FAILURE
     Dosage: 80 MG, QD
     Route: 048
     Dates: start: 20100825
  11. FUROSEMIDE [Concomitant]
     Dosage: 125 MGX 370
     Route: 048
     Dates: start: 20111212, end: 20120111
  12. ENALAPRIL MALEATE [Suspect]
     Indication: CARDIAC FAILURE
     Dosage: CODE NOT BROKEN
     Route: 048
     Dates: start: 20101004, end: 20110308
  13. BLINDED NO TREATMENT RECEIVED [Suspect]
     Dosage: CODE NOT BROKEN
     Route: 048
     Dates: start: 20110318, end: 20110410
  14. DIGOXIN [Concomitant]
     Indication: ATRIAL FIBRILLATION
     Dosage: 125 UG, QD
     Route: 048
     Dates: start: 20080316
  15. CLOPIDOGREL [Concomitant]
     Indication: MYOCARDIAL INFARCTION
  16. ISODUR [Concomitant]
     Dosage: UNK
     Dates: start: 20110308
  17. CORDAN [Concomitant]
     Indication: VENTRICULAR TACHYCARDIA
     Dosage: 200 MG, TID
     Route: 048
     Dates: start: 20110314, end: 20110319
  18. ENALAPRIL MALEATE [Suspect]
     Dosage: CODE NOT BROKEN
     Route: 048
     Dates: start: 20110318, end: 20110410
  19. WARFARIN SODIUM [Concomitant]
     Indication: ATRIAL FIBRILLATION
     Dosage: UNK
     Route: 048
     Dates: start: 20051216

REACTIONS (5)
  - CARDIAC FAILURE CONGESTIVE [None]
  - NEPHROGENIC ANAEMIA [None]
  - ANGINA PECTORIS [None]
  - PNEUMONIA [None]
  - NEPHROLITHIASIS [None]
